FAERS Safety Report 11454829 (Version 2)
Quarter: 2015Q3

REPORT INFORMATION
  Report Type: Spontaneous
  Country: CH (occurrence: CH)
  Receive Date: 20150903
  Receipt Date: 20150916
  Transmission Date: 20151125
  Serious: Yes (Hospitalization, Other)
  Sender: FDA-Public Use
  Company Number: PHHY2015CH103917

PATIENT
  Age: 68 Year
  Sex: Female

DRUGS (3)
  1. AFINITOR [Suspect]
     Active Substance: EVEROLIMUS
     Dosage: 5 MG, QD
     Route: 048
     Dates: start: 20150701, end: 20150722
  2. AFINITOR [Suspect]
     Active Substance: EVEROLIMUS
     Indication: BREAST CANCER METASTATIC
     Dosage: 10 MG, QD
     Route: 048
     Dates: start: 20150605, end: 20150623
  3. AROMASIN [Concomitant]
     Active Substance: EXEMESTANE
     Indication: PRODUCT USED FOR UNKNOWN INDICATION
     Dosage: 25 MG, QD
     Route: 065

REACTIONS (15)
  - Thrombocytopenia [Unknown]
  - Mucosal inflammation [Unknown]
  - Haemorrhage subcutaneous [Unknown]
  - Stomatitis [Unknown]
  - Malignant peritoneal neoplasm [Unknown]
  - Malignant neoplasm progression [Unknown]
  - Epistaxis [Unknown]
  - Back pain [Unknown]
  - Fatigue [Unknown]
  - Ascites [Unknown]
  - Second primary malignancy [Unknown]
  - General physical health deterioration [Unknown]
  - Weight decreased [Unknown]
  - Drug ineffective [Unknown]
  - Metastases to liver [Unknown]

NARRATIVE: CASE EVENT DATE: 20150727
